FAERS Safety Report 6722299-9 (Version None)
Quarter: 2010Q2

REPORT INFORMATION
  Report Type: 
  Country: None (occurrence: None)
  Receive Date: 20100510
  Receipt Date: 20100505
  Transmission Date: 20101027
  Serious: Yes (Death, Hospitalization)
  Sender: FDA-Public Use
  Company Number: 2010SP025393

PATIENT
  Age: 50 Year
  Sex: Male

DRUGS (2)
  1. PEGINTERFERON ALFA-2B (PEGINTERFERON ALFA-2B /01543001/) [Suspect]
     Indication: HEPATITIS C
     Dosage: 80 MCG;QW
  2. RIBAVIRIN [Suspect]
     Indication: HEPATITIS C

REACTIONS (16)
  - ALANINE AMINOTRANSFERASE INCREASED [None]
  - ASPARTATE AMINOTRANSFERASE INCREASED [None]
  - ATRIAL FIBRILLATION [None]
  - BLOOD PRESSURE DECREASED [None]
  - CARDIAC FAILURE ACUTE [None]
  - CARDIOTOXICITY [None]
  - COMPLICATIONS OF TRANSPLANTED HEART [None]
  - CORONARY ARTERY DISEASE [None]
  - DILATATION VENTRICULAR [None]
  - DYSPNOEA [None]
  - GRAFT ISCHAEMIA [None]
  - HEPATIC FIBROSIS [None]
  - LIPID METABOLISM DISORDER [None]
  - MUSCLE ATROPHY [None]
  - PALPITATIONS [None]
  - VENTRICULAR HYPOKINESIA [None]
